FAERS Safety Report 12877571 (Version 2)
Quarter: 2016Q4

REPORT INFORMATION
  Report Type: Spontaneous
  Country: BE (occurrence: BE)
  Receive Date: 20161024
  Receipt Date: 20161227
  Transmission Date: 20170207
  Serious: Yes (Hospitalization)
  Sender: FDA-Public Use
  Company Number: BE-ABBVIE-16K-013-1759906-00

PATIENT
  Age: 54 Year
  Sex: Female
  Weight: 49.49 kg

DRUGS (2)
  1. HUMIRA [Suspect]
     Active Substance: ADALIMUMAB
     Indication: PSORIASIS
     Route: 058
     Dates: start: 2008, end: 20160805
  2. HUMIRA [Suspect]
     Active Substance: ADALIMUMAB
     Indication: PSORIATIC ARTHROPATHY

REACTIONS (9)
  - Staphylococcal sepsis [Recovered/Resolved]
  - Embolism [Recovered/Resolved]
  - Deep vein thrombosis [Recovered/Resolved]
  - Blood fibrinogen increased [Unknown]
  - Fibrin D dimer increased [Unknown]
  - Atrial fibrillation [Unknown]
  - Blood glucose increased [Unknown]
  - Gamma-glutamyltransferase increased [Unknown]
  - Sepsis [Not Recovered/Not Resolved]

NARRATIVE: CASE EVENT DATE: 20160710
